FAERS Safety Report 8215572-9 (Version None)
Quarter: 2012Q1

REPORT INFORMATION
  Report Type: 
  Country: None (occurrence: None)
  Receive Date: 20120316
  Receipt Date: 20120302
  Transmission Date: 20120608
  Serious: Yes (Other)
  Sender: FDA-Public Use
  Company Number: BE-ROCHE-1045982

PATIENT
  Age: 46 Year
  Sex: Male
  Weight: 86 kg

DRUGS (1)
  1. VEMURAFENIB [Suspect]
     Indication: METASTATIC MALIGNANT MELANOMA
     Dosage: LAST DOSE PRIOR TO SAE 25 JAN 2012
     Route: 048
     Dates: start: 20110714

REACTIONS (1)
  - SUPERFICIAL SPREADING MELANOMA STAGE I [None]
